FAERS Safety Report 7225391-8 (Version None)
Quarter: 2011Q1

REPORT INFORMATION
  Report Type: 
  Country: None (occurrence: None)
  Receive Date: 20110113
  Receipt Date: 20110111
  Transmission Date: 20110831
  Serious: Yes (Death, Other)
  Sender: FDA-Public Use
  Company Number: PL-PFIZER INC-2010164508

PATIENT
  Age: 25 Year
  Sex: Female
  Weight: 94.785 kg

DRUGS (4)
  1. KLOZAPOL [Suspect]
     Indication: SCHIZOPHRENIA
     Dosage: 75 MG/DAY
     Route: 048
     Dates: start: 20100303, end: 20101128
  2. ANAFRANIL [Concomitant]
     Dosage: UNK
     Route: 048
     Dates: start: 20101001, end: 20101128
  3. ZELDOX [Suspect]
     Indication: SCHIZOPHRENIA
     Dosage: 160 MG/DAY
     Route: 048
     Dates: start: 20100412
  4. DIANE [Concomitant]
     Indication: POLYCYSTIC OVARIES

REACTIONS (2)
  - PULMONARY EMBOLISM [None]
  - HEPATIC NEOPLASM [None]
